FAERS Safety Report 19067098 (Version 1)
Quarter: 2021Q1

REPORT INFORMATION
  Report Type: Other
  Country: JP (occurrence: JP)
  Receive Date: 20210329
  Receipt Date: 20210329
  Transmission Date: 20210420
  Serious: Yes (Death, Other)
  Sender: FDA-Public Use
  Company Number: JP-ROCHE-2792765

PATIENT

DRUGS (1)
  1. OSELTAMIVIR [Suspect]
     Active Substance: OSELTAMIVIR
     Indication: PRODUCT USED FOR UNKNOWN INDICATION
     Route: 065

REACTIONS (13)
  - Agitation [Unknown]
  - Hallucination, auditory [Unknown]
  - Hallucination, visual [Unknown]
  - Confusional state [Unknown]
  - Restlessness [Unknown]
  - Aggression [Unknown]
  - Intentional self-injury [Unknown]
  - Abnormal behaviour [Unknown]
  - Illusion [Unknown]
  - Suicide attempt [Unknown]
  - Completed suicide [Fatal]
  - Amnesia [Unknown]
  - Fear [Unknown]
